FAERS Safety Report 5511746-6 (Version None)
Quarter: 2007Q4

REPORT INFORMATION
  Report Type: 
  Country: None (occurrence: None)
  Receive Date: 20071109
  Receipt Date: 20071030
  Transmission Date: 20080405
  Serious: Yes (Death)
  Sender: FDA-Public Use
  Company Number: TR-PFIZER INC-2007084494

PATIENT
  Sex: Male
  Weight: 83 kg

DRUGS (18)
  1. SU-011,248 [Suspect]
     Indication: METASTATIC RENAL CELL CARCINOMA
     Route: 048
     Dates: start: 20070206, end: 20070930
  2. SODIUM CHLORIDE [Concomitant]
     Route: 042
     Dates: start: 20070207, end: 20070209
  3. FUROSEMIDE [Concomitant]
     Route: 042
     Dates: start: 20070207, end: 20070209
  4. METHYLPREDNISOLONE [Concomitant]
     Dates: start: 20070207, end: 20070209
  5. ZOLEDRONIC ACID [Concomitant]
     Dates: start: 20070208, end: 20070208
  6. ALLOPURINOL [Concomitant]
     Dates: start: 20070207, end: 20070220
  7. AMLODIPINE [Concomitant]
  8. SODIUM BICARBONATE [Concomitant]
     Dates: start: 20070218, end: 20070225
  9. SODIUM BICARBONATE [Concomitant]
     Dates: start: 20070510, end: 20070610
  10. NAPROXEN [Concomitant]
  11. PANTOPRAZOLE SODIUM [Concomitant]
  12. LACTULOSE [Concomitant]
  13. SODIUM BICARBONATE [Concomitant]
  14. PARACETAMOL [Concomitant]
  15. CODEINE SUL TAB [Concomitant]
  16. CICLONIUM BROMIDE [Concomitant]
     Dates: start: 20070724
  17. TANTUM VERDE [Concomitant]
     Dates: start: 20070510, end: 20070515
  18. TANTUM VERDE [Concomitant]

REACTIONS (1)
  - DEATH [None]
